FAERS Safety Report 5762745-0 (Version None)
Quarter: 2008Q2

REPORT INFORMATION
  Report Type: 
  Country: None (occurrence: None)
  Receive Date: 20080609
  Receipt Date: 20080530
  Transmission Date: 20081010
  Serious: Yes (Hospitalization)
  Sender: FDA-Public Use
  Company Number: FR-ASTRAZENECA-2007CG01785

PATIENT
  Age: 28003 Day
  Sex: Female

DRUGS (5)
  1. ARIMIDEX [Suspect]
     Indication: BREAST CANCER FEMALE
     Route: 048
     Dates: start: 20070415
  2. RADIOTHERAPY [Suspect]
     Indication: BREAST CANCER FEMALE
     Dosage: 25 GRAY RECEIVED
     Dates: start: 20070801, end: 20071119
  3. BACTRIM [Concomitant]
     Dates: start: 20071201, end: 20071213
  4. EPIRUBICIN [Concomitant]
     Dates: start: 20070401
  5. ENDOXAN [Concomitant]
     Dates: start: 20070401

REACTIONS (1)
  - BONE MARROW FAILURE [None]
